FAERS Safety Report 23867845 (Version 6)
Quarter: 2025Q3

REPORT INFORMATION
  Report Type: Spontaneous
  Country: JP (occurrence: JP)
  Receive Date: 20240517
  Receipt Date: 20250809
  Transmission Date: 20251020
  Serious: Yes (Hospitalization, Other)
  Sender: ALEXION PHARMACEUTICALS
  Company Number: 2024A112379

PATIENT
  Age: 75 Year
  Sex: Male
  Weight: 77 kg

DRUGS (15)
  1. TAGRISSO [Suspect]
     Active Substance: OSIMERTINIB
     Indication: Non-small cell lung cancer
     Dosage: 80 MILLIGRAM, QD
     Dates: start: 20240220, end: 20240509
  2. TAGRISSO [Suspect]
     Active Substance: OSIMERTINIB
     Dosage: 80 MILLIGRAM, QD
     Dates: start: 20240519, end: 20240529
  3. TAGRISSO [Suspect]
     Active Substance: OSIMERTINIB
     Dosage: 40 MILLIGRAM, QD
     Dates: start: 20240530, end: 20240703
  4. TAGRISSO [Suspect]
     Active Substance: OSIMERTINIB
     Dosage: 80 MILLIGRAM, QD
     Dates: start: 20240704
  5. POLAPREZINC [Concomitant]
     Active Substance: POLAPREZINC
     Indication: Taste disorder
     Dates: start: 20240223, end: 20240410
  6. CARVEDILOL [Concomitant]
     Active Substance: CARVEDILOL
     Indication: Cardiac failure chronic
  7. CARVEDILOL [Concomitant]
     Active Substance: CARVEDILOL
     Dosage: 2.5 MILLIGRAM
  8. ASPIRIN [Concomitant]
     Active Substance: ASPIRIN
     Indication: Myocardial infarction
  9. ASPIRIN [Concomitant]
     Active Substance: ASPIRIN
     Dosage: 100 MILLIGRAM
  10. EZETIMIBE\ROSUVASTATIN [Concomitant]
     Active Substance: EZETIMIBE\ROSUVASTATIN
     Indication: Cardiac failure chronic
  11. EZETIMIBE\ROSUVASTATIN [Concomitant]
     Active Substance: EZETIMIBE\ROSUVASTATIN
     Dosage: 10 MILLIGRAM
  12. LAFUTIDINE [Concomitant]
     Active Substance: LAFUTIDINE
     Indication: Gastric ulcer
  13. LAFUTIDINE [Concomitant]
     Active Substance: LAFUTIDINE
     Dosage: 10 MILLIGRAM
  14. NAFTOPIDIL [Concomitant]
     Active Substance: NAFTOPIDIL
     Indication: Benign prostatic hyperplasia
  15. NAFTOPIDIL [Concomitant]
     Active Substance: NAFTOPIDIL

REACTIONS (4)
  - Deafness neurosensory [Not Recovered/Not Resolved]
  - Angiopathy [Not Recovered/Not Resolved]
  - Deafness traumatic [Unknown]
  - Tinnitus [Unknown]

NARRATIVE: CASE EVENT DATE: 20240422
